FAERS Safety Report 4360855-6 (Version None)
Quarter: 2004Q2

REPORT INFORMATION
  Report Type: 
  Country: None (occurrence: None)
  Receive Date: 20040520
  Receipt Date: 20040422
  Transmission Date: 20050107
  Serious: Yes (Death, Hospitalization)
  Sender: FDA-Public Use
  Company Number: US-BRISTOL-MYERS SQUIBB COMPANY-12568051

PATIENT
  Age: 58 Year
  Sex: Male
  Weight: 115 kg

DRUGS (7)
  1. ERBITUX [Suspect]
     Indication: COLORECTAL CANCER METASTATIC
     Dosage: FIRST INFUSION, LOADING DOSE - 450 MG/M2. TERMINATED AFTER 1 HR
     Route: 042
     Dates: start: 20040421, end: 20040421
  2. BENADRYL [Concomitant]
     Route: 042
     Dates: start: 20040421, end: 20040421
  3. LORTAB [Concomitant]
     Indication: PAIN
  4. OXYGEN [Concomitant]
  5. ALOXI [Concomitant]
     Route: 042
  6. DECADRON [Concomitant]
     Route: 042
  7. TYLENOL [Concomitant]
     Route: 048

REACTIONS (3)
  - ANAPHYLACTIC REACTION [None]
  - COLON CANCER [None]
  - LOSS OF CONSCIOUSNESS [None]
